FAERS Safety Report 23581617 (Version 2)
Quarter: 2024Q1

REPORT INFORMATION
  Report Type: Spontaneous
  Country: US (occurrence: US)
  Receive Date: 20240229
  Receipt Date: 20240326
  Transmission Date: 20240409
  Serious: No
  Sender: FDA-Public Use
  Company Number: US-PFIZER INC-PV202400028210

PATIENT
  Age: 89 Year
  Sex: Female

DRUGS (1)
  1. CIBINQO [Suspect]
     Active Substance: ABROCITINIB
     Dosage: 100 MG
     Route: 048
     Dates: start: 20231120, end: 20240228

REACTIONS (4)
  - Vision blurred [Unknown]
  - Oral pain [Unknown]
  - Dizziness [Unknown]
  - Therapeutic product effect incomplete [Recovering/Resolving]
